FAERS Safety Report 11272152 (Version 2)
Quarter: 2015Q3

REPORT INFORMATION
  Report Type: Report from Study
  Country: NL (occurrence: NL)
  Receive Date: 20150715
  Receipt Date: 20150730
  Transmission Date: 20151125
  Serious: Yes (Hospitalization)
  Sender: FDA-Public Use
  Company Number: NL-ROCHE-1604602

PATIENT
  Age: 58 Year
  Sex: Male

DRUGS (8)
  1. PRENISOLONE [Concomitant]
     Indication: CHRONIC GRAFT VERSUS HOST DISEASE
     Route: 048
  2. VALACYCLOVIR [Concomitant]
     Active Substance: VALACYCLOVIR HYDROCHLORIDE
     Route: 048
  3. RITUXIMAB [Suspect]
     Active Substance: RITUXIMAB
     Dosage: WEEKLY
     Route: 042
     Dates: start: 20150625
  4. RITUXIMAB [Suspect]
     Active Substance: RITUXIMAB
     Dosage: WEEKLY
     Route: 042
     Dates: start: 20150702
  5. CICLOSPORIN [Concomitant]
     Active Substance: CYCLOSPORINE
     Indication: CHRONIC GRAFT VERSUS HOST DISEASE
     Dosage: DAILY DOSE: 2DD 150 MG
     Route: 048
  6. COTRIMOXAZOLE [Concomitant]
     Active Substance: SULFAMETHOXAZOLE\TRIMETHOPRIM
     Indication: PROPHYLAXIS
     Route: 048
  7. RITUXIMAB [Suspect]
     Active Substance: RITUXIMAB
     Indication: CHRONIC GRAFT VERSUS HOST DISEASE
     Dosage: WEEKLY
     Route: 042
     Dates: start: 20150618, end: 20150709
  8. CELLCEPT [Concomitant]
     Active Substance: MYCOPHENOLATE MOFETIL\MYCOPHENOLATE MOFETIL HYDROCHLORIDE
     Indication: CHRONIC GRAFT VERSUS HOST DISEASE
     Route: 048

REACTIONS (1)
  - Pleural effusion [Unknown]

NARRATIVE: CASE EVENT DATE: 20150703
